FAERS Safety Report 10018874 (Version 4)
Quarter: 2014Q4

REPORT INFORMATION
  Report Type: Spontaneous
  Country: US (occurrence: US)
  Receive Date: 20140318
  Receipt Date: 20141031
  Transmission Date: 20150528
  Serious: Yes (Hospitalization, Other)
  Sender: FDA-Public Use
  Company Number: US-009507513-1403USA004492

PATIENT
  Sex: Female
  Weight: 94.33 kg

DRUGS (8)
  1. PLAQUENIL [Concomitant]
     Active Substance: HYDROXYCHLOROQUINE SULFATE
     Indication: RHEUMATOID ARTHRITIS
     Dosage: UNK
     Dates: start: 199307, end: 2010
  2. FOSAMAX [Suspect]
     Active Substance: ALENDRONATE SODIUM
     Indication: OSTEOPOROSIS
     Dosage: 70 MG, QD
     Route: 048
     Dates: start: 20000217, end: 20040222
  3. DICLOFENAC SODIUM. [Concomitant]
     Active Substance: DICLOFENAC SODIUM
     Indication: FIBROMYALGIA
     Dosage: UNK
     Dates: start: 1995
  4. BONIVA [Suspect]
     Active Substance: IBANDRONATE SODIUM
     Indication: OSTEOPOROSIS
     Dosage: 150 MG, UNK
     Route: 048
     Dates: start: 20100712, end: 20111031
  5. PLAQUENIL [Concomitant]
     Active Substance: HYDROXYCHLOROQUINE SULFATE
     Indication: SYSTEMIC LUPUS ERYTHEMATOSUS
  6. CALTRATE [Concomitant]
     Active Substance: CALCIUM CARBONATE
     Dosage: 600 MG, UNK
     Dates: start: 1990
  7. ACTONEL [Suspect]
     Active Substance: RISEDRONATE SODIUM
     Indication: OSTEOPOROSIS
     Dosage: 35-150 MG, UNK
     Route: 048
     Dates: start: 20080723, end: 20100712
  8. HORMONES (UNSPECIFIED) [Concomitant]
     Active Substance: UNSPECIFIED INGREDIENT
     Dosage: UNK
     Dates: start: 1995, end: 2010

REACTIONS (27)
  - Intramedullary rod insertion [Unknown]
  - Vertebral osteophyte [Unknown]
  - Gastrooesophageal reflux disease [Unknown]
  - Vertebral foraminal stenosis [Unknown]
  - Paraesthesia [Unknown]
  - Parathyroid gland operation [Unknown]
  - Oedema [Unknown]
  - Low turnover osteopathy [Unknown]
  - Medical device removal [Unknown]
  - Osteopenia [Unknown]
  - Drug intolerance [Unknown]
  - Vitamin D deficiency [Unknown]
  - Gastritis [Unknown]
  - Cholecystectomy [Unknown]
  - Carpal tunnel syndrome [Unknown]
  - Arthropod bite [Unknown]
  - Hypertension [Unknown]
  - Herpes zoster [Unknown]
  - Pain [Unknown]
  - Inappropriate schedule of drug administration [Unknown]
  - Rib fracture [Unknown]
  - Femur fracture [Unknown]
  - Parathyroid gland operation [Unknown]
  - Spinal osteoarthritis [Unknown]
  - Osteoarthritis [Unknown]
  - Muscle spasms [Unknown]
  - Depression [Unknown]

NARRATIVE: CASE EVENT DATE: 2001
